FAERS Safety Report 7109671-2 (Version None)
Quarter: 2010Q4

REPORT INFORMATION
  Report Type: 
  Country: None (occurrence: None)
  Receive Date: 20101115
  Receipt Date: 20101115
  Transmission Date: 20110411
  Serious: Yes (Other)
  Sender: FDA-Public Use
  Company Number: None

PATIENT
  Sex: Female
  Weight: 107.4 kg

DRUGS (9)
  1. LBH-589 (PANOBINOSTAT) [Suspect]
     Indication: GLIOBLASTOMA
     Dosage: 20MG/D PO, 3D/WK, QOWEEK
     Route: 048
     Dates: start: 20100422, end: 20101004
  2. BEVACIZUMAB [Suspect]
     Indication: GLIOBLASTOMA
     Dosage: 10MG/KG IV Q 2 WEEKS
     Route: 042
     Dates: start: 20100422, end: 20100930
  3. ATIVAN [Concomitant]
  4. PROTONIX [Concomitant]
  5. LISINOPRIL [Concomitant]
  6. NORVASC [Concomitant]
  7. NEURONTIN [Concomitant]
  8. TYLENOL (CAPLET) [Concomitant]
  9. OXYCODONE HCL [Concomitant]

REACTIONS (1)
  - THYROID CANCER [None]
